FAERS Safety Report 11460204 (Version 1)
Quarter: 2015Q3

REPORT INFORMATION
  Report Type: Spontaneous
  Country: US (occurrence: US)
  Receive Date: 20150904
  Receipt Date: 20150904
  Transmission Date: 20151125
  Serious: Yes (Death)
  Sender: FDA-Public Use
  Company Number: US-ASTELLAS-2015US031974

PATIENT
  Sex: Female

DRUGS (1)
  1. TARCEVA [Suspect]
     Active Substance: ERLOTINIB HYDROCHLORIDE
     Indication: MEDULLOBLASTOMA
     Dosage: 50 MG, ONCE DAILY FOR 28 DAYS
     Route: 048

REACTIONS (2)
  - Off label use [Unknown]
  - Death [Fatal]
